FAERS Safety Report 7628887-X (Version None)
Quarter: 2011Q3

REPORT INFORMATION
  Report Type: 
  Country: None (occurrence: None)
  Receive Date: 20110722
  Receipt Date: 20110715
  Transmission Date: 20111222
  Serious: Yes (Hospitalization)
  Sender: FDA-Public Use
  Company Number: US-SANOFI-AVENTIS-2011SA046206

PATIENT
  Age: 76 Year
  Sex: Male

DRUGS (3)
  1. SOLOSTAR [Suspect]
     Indication: TYPE 2 DIABETES MELLITUS
     Dates: start: 20110601
  2. LANTUS [Suspect]
     Indication: TYPE 2 DIABETES MELLITUS
     Dosage: DOSE:20 UNIT(S)
     Route: 058
     Dates: start: 20110601
  3. LANTUS [Suspect]
     Dosage: DOSE:36 UNIT(S)
     Route: 058
     Dates: start: 20110601, end: 20110601

REACTIONS (2)
  - STAPHYLOCOCCAL INFECTION [None]
  - BLOOD GLUCOSE DECREASED [None]
